FAERS Safety Report 12253947 (Version 1)
Quarter: 2016Q2

REPORT INFORMATION
  Report Type: Spontaneous
  Country: FR (occurrence: FR)
  Receive Date: 20160411
  Receipt Date: 20160411
  Transmission Date: 20160815
  Serious: Yes (Death, Other)
  Sender: FDA-Public Use
  Company Number: FR-CELGENE-FRA-2016024032

PATIENT

DRUGS (3)
  1. BORTEZOMIB [Concomitant]
     Active Substance: BORTEZOMIB
     Indication: PLASMA CELL MYELOMA
     Route: 058
  2. DEXAMETHASONE. [Concomitant]
     Active Substance: DEXAMETHASONE
     Indication: PLASMA CELL MYELOMA
     Route: 048
  3. THALIDOMIDE CELGENE [Suspect]
     Active Substance: THALIDOMIDE
     Indication: PLASMA CELL MYELOMA
     Dosage: 100 MILLIGRAM
     Route: 048

REACTIONS (10)
  - Pulmonary embolism [Fatal]
  - Thrombosis [Unknown]
  - Neuropathy peripheral [Unknown]
  - Cardiac disorder [Unknown]
  - Neutropenia [Unknown]
  - Infection [Fatal]
  - Thrombocytopenia [Unknown]
  - Anaemia [Unknown]
  - Gastrointestinal disorder [Unknown]
  - Disease progression [Unknown]
